FAERS Safety Report 5798921-0 (Version None)
Quarter: 2008Q3

REPORT INFORMATION
  Report Type: 
  Country: None (occurrence: None)
  Receive Date: 20080702
  Receipt Date: 20080624
  Transmission Date: 20090109
  Serious: Yes (Other)
  Sender: FDA-Public Use
  Company Number: AU-PFIZER INC-2008053488

PATIENT
  Sex: Female

DRUGS (3)
  1. ZELDOX (CAPSULES) [Suspect]
     Indication: SCHIZOAFFECTIVE DISORDER
     Dosage: FREQ:ABOVE 120MG PER DAY
     Route: 048
  2. EFFEXOR [Concomitant]
  3. EPILIM [Concomitant]

REACTIONS (7)
  - DYSPHAGIA [None]
  - LARYNGOSPASM [None]
  - LOSS OF CONSCIOUSNESS [None]
  - SEDATION [None]
  - SWELLING [None]
  - SYNCOPE [None]
  - URINARY INCONTINENCE [None]
